FAERS Safety Report 26064247 (Version 1)
Quarter: 2025Q4

REPORT INFORMATION
  Report Type: Report from Study
  Country: US (occurrence: US)
  Receive Date: 20251119
  Receipt Date: 20251119
  Transmission Date: 20260118
  Serious: Yes (Other)
  Sender: TAKEDA
  Company Number: US-TAKEDA-2025TUS102154

PATIENT
  Age: 75 Year
  Sex: Male

DRUGS (1)
  1. VEDOLIZUMAB [Suspect]
     Active Substance: VEDOLIZUMAB
     Indication: Colitis ulcerative
     Dosage: 300 MILLIGRAM

REACTIONS (9)
  - Systemic lupus erythematosus [Unknown]
  - Diverticulum intestinal [Unknown]
  - Drug intolerance [Unknown]
  - Cardiovascular disorder [Unknown]
  - Dyslipidaemia [Unknown]
  - Persistent depressive disorder [Unknown]
  - Sarcoidosis [Unknown]
  - Haemorrhoids [Unknown]
  - Acne [Unknown]
